FAERS Safety Report 13078799 (Version 1)
Quarter: 2017Q1

REPORT INFORMATION
  Report Type: Spontaneous
  Country: RU (occurrence: RU)
  Receive Date: 20170102
  Receipt Date: 20170102
  Transmission Date: 20170428
  Serious: Yes (Life-Threatening)
  Sender: FDA-Public Use
  Company Number: RU-B. BRAUN MEDICAL INC.-1061437

PATIENT
  Age: 66 Year
  Sex: Female

DRUGS (1)
  1. DEXTROSE INJECTIONS USP 0264-7510-00 0264-7510-20 [Suspect]
     Active Substance: DEXTROSE
     Route: 042

REACTIONS (1)
  - Anaphylactic shock [Recovering/Resolving]
